FAERS Safety Report 4923071-2 (Version None)
Quarter: 2006Q1

REPORT INFORMATION
  Report Type: 
  Country: None (occurrence: None)
  Receive Date: 20060113
  Receipt Date: 20050106
  Transmission Date: 20060701
  Serious: Yes (Other)
  Sender: FDA-Public Use
  Company Number: HQWYE195316JUL04

PATIENT
  Age: 63 Year
  Sex: Female
  Weight: 45.4 kg

DRUGS (11)
  1. PREMPRO [Suspect]
     Indication: CRYING
  2. PREMPRO [Suspect]
     Indication: HOT FLUSH
  3. PREMPRO [Suspect]
     Indication: NIGHT SWEATS
  4. ESTRACE [Suspect]
     Indication: HOT FLUSH
  5. ESTRACE [Suspect]
     Indication: NIGHT SWEATS
  6. PREMARIN [Suspect]
     Indication: CRYING
  7. PREMARIN [Suspect]
     Indication: HOT FLUSH
  8. PREMARIN [Suspect]
     Indication: NIGHT SWEATS
  9. PROVERA [Suspect]
     Indication: CRYING
  10. PROVERA [Suspect]
     Indication: HOT FLUSH
  11. PROVERA [Suspect]
     Indication: NIGHT SWEATS

REACTIONS (1)
  - BREAST CANCER [None]
